FAERS Safety Report 17043867 (Version 4)
Quarter: 2020Q1

REPORT INFORMATION
  Report Type: Spontaneous
  Country: US (occurrence: US)
  Receive Date: 20191118
  Receipt Date: 20200106
  Transmission Date: 20200409
  Serious: Yes (Hospitalization)
  Sender: FDA-Public Use
  Company Number: US-OTSUKA-2018_024084

PATIENT
  Sex: Female

DRUGS (10)
  1. CLONAZEPAM. [Concomitant]
     Active Substance: CLONAZEPAM
     Indication: PRODUCT USED FOR UNKNOWN INDICATION
     Dosage: 1 MG, UNK (QHS)
     Route: 065
  2. DEPLIN [Concomitant]
     Active Substance: LEVOMEFOLATE CALCIUM
     Indication: PRODUCT USED FOR UNKNOWN INDICATION
     Dosage: 15 MG, UNK (QAM)
     Route: 065
     Dates: start: 20151103
  3. ABILIFY [Suspect]
     Active Substance: ARIPIPRAZOLE
     Indication: MAJOR DEPRESSION
     Dosage: 15 MG, QD
     Route: 065
     Dates: start: 2009, end: 2014
  4. ARIPIPRAZOLE. [Concomitant]
     Active Substance: ARIPIPRAZOLE
     Indication: PRODUCT USED FOR UNKNOWN INDICATION
     Dosage: UNK
     Route: 065
  5. VRAYLAR [Concomitant]
     Active Substance: CARIPRAZINE
     Indication: PRODUCT USED FOR UNKNOWN INDICATION
     Dosage: 3 MG, UNK (QAM)
     Route: 065
     Dates: start: 20161214
  6. PRAZOSIN. [Concomitant]
     Active Substance: PRAZOSIN
     Indication: PRODUCT USED FOR UNKNOWN INDICATION
     Dosage: 4 MG, UNK (QHS)
     Route: 065
  7. DEPAKOTE [Concomitant]
     Active Substance: DIVALPROEX SODIUM
     Indication: PRODUCT USED FOR UNKNOWN INDICATION
     Dosage: 250 MG, BID
     Route: 065
     Dates: start: 20160929
  8. CONCERTA [Concomitant]
     Active Substance: METHYLPHENIDATE HYDROCHLORIDE
     Indication: PRODUCT USED FOR UNKNOWN INDICATION
     Dosage: 27 MG, UNK(QAM)
     Route: 065
  9. ABILIFY [Suspect]
     Active Substance: ARIPIPRAZOLE
     Indication: ANXIETY
  10. ABILIFY [Suspect]
     Active Substance: ARIPIPRAZOLE
     Indication: POST-TRAUMATIC STRESS DISORDER

REACTIONS (39)
  - C-reactive protein abnormal [Unknown]
  - White blood cell disorder [Unknown]
  - Haemoglobin abnormal [Unknown]
  - Blood sodium abnormal [Unknown]
  - Blood potassium abnormal [Unknown]
  - Restlessness [Unknown]
  - Insomnia [Unknown]
  - Compulsive hoarding [Not Recovered/Not Resolved]
  - Mental disorder [Unknown]
  - Blood phosphorus abnormal [Unknown]
  - Aspartate aminotransferase abnormal [Unknown]
  - Protein urine present [Unknown]
  - Urine ketone body present [Unknown]
  - Dyspnoea [Unknown]
  - Compulsive shopping [Not Recovered/Not Resolved]
  - Carbohydrate antigen 125 increased [Unknown]
  - Urine abnormality [Unknown]
  - Haematocrit abnormal [Unknown]
  - Blood urine present [Unknown]
  - Loss of employment [Unknown]
  - Economic problem [Unknown]
  - Platelet disorder [Unknown]
  - Blood bilirubin abnormal [Unknown]
  - Homeless [Unknown]
  - Bankruptcy [Unknown]
  - Injury [Unknown]
  - Feeling abnormal [Unknown]
  - Asthenia [Unknown]
  - Obsessive-compulsive disorder [Unknown]
  - Carbon dioxide abnormal [Unknown]
  - Red blood cell abnormality [Unknown]
  - Bilirubin conjugated abnormal [Unknown]
  - Specific gravity urine abnormal [Unknown]
  - Decreased appetite [Unknown]
  - Alanine aminotransferase abnormal [Unknown]
  - Product use in unapproved indication [Unknown]
  - Blood potassium abnormal [Unknown]
  - Gambling disorder [Recovered/Resolved]
  - Compulsive sexual behaviour [Not Recovered/Not Resolved]

NARRATIVE: CASE EVENT DATE: 20100512
